FAERS Safety Report 24258999 (Version 9)
Quarter: 2025Q4

REPORT INFORMATION
  Report Type: Spontaneous
  Country: US (occurrence: US)
  Receive Date: 20240828
  Receipt Date: 20251105
  Transmission Date: 20260117
  Serious: No
  Sender: PFIZER
  Company Number: US-PFIZER INC-PV202300122052

PATIENT
  Age: 84 Year
  Sex: Female
  Weight: 56.6 kg

DRUGS (7)
  1. IBRANCE [Suspect]
     Active Substance: PALBOCICLIB
     Indication: Breast cancer female
     Dosage: (TAKE AT THE SAME TIME DAILY ON DAYS 1-21 OF EACH 28 DAYS CYCLE)
     Route: 048
  2. IBRANCE [Suspect]
     Active Substance: PALBOCICLIB
     Dosage: TAKE AT THE SAME TIME DAILY ON DAYS 1 -21 OF EACH 28 DAY CYCLE, SWALLOW WHOLE)
     Route: 048
  3. IBRANCE [Suspect]
     Active Substance: PALBOCICLIB
     Dosage: 75 MG, CYCLIC (TAKE 1 TABLET (75 MG) BY MOUTH DAILY ON DAYS 1-21 OF EACH 28 DAY CYCLE
     Route: 048
  4. LETROZOLE [Concomitant]
     Active Substance: LETROZOLE
     Indication: Neoplasm malignant
     Dosage: UNK
  5. LEVOTHYROXINE [Concomitant]
     Active Substance: LEVOTHYROXINE
     Indication: Thyroid disorder
     Dosage: UNK
  6. HYDROCHLOROTHIAZIDE [Concomitant]
     Active Substance: HYDROCHLOROTHIAZIDE
     Indication: Diuretic therapy
     Dosage: UNK, ALTERNATE DAY
  7. HYDROCHLOROTHIAZIDE [Concomitant]
     Active Substance: HYDROCHLOROTHIAZIDE
     Indication: Swelling

REACTIONS (6)
  - Skin exfoliation [Unknown]
  - Pruritus [Unknown]
  - Dry skin [Unknown]
  - Swelling [Unknown]
  - Musculoskeletal stiffness [Unknown]
  - Pain in extremity [Unknown]
